FAERS Safety Report 8022879-7 (Version None)
Quarter: 2012Q1

REPORT INFORMATION
  Report Type: 
  Country: None (occurrence: None)
  Receive Date: 20120104
  Receipt Date: 20111220
  Transmission Date: 20120608
  Serious: Yes (Life-Threatening)
  Sender: FDA-Public Use
  Company Number: DE-CELGENEUS-062-50794-11060120

PATIENT
  Age: 71 Year
  Sex: Male
  Weight: 121 kg

DRUGS (3)
  1. IDARUBICIN HCL [Suspect]
     Dosage: 24 MILLIGRAM
     Route: 065
     Dates: start: 20110509, end: 20110511
  2. VIDAZA [Suspect]
     Dosage: 200 MILLIGRAM
     Route: 050
     Dates: start: 20110504, end: 20110508
  3. ETOPOSIDE [Suspect]
     Dosage: 200 MILLIGRAM
     Route: 065
     Dates: start: 20110509, end: 20110511

REACTIONS (1)
  - SOFT TISSUE INFECTION [None]
